FAERS Safety Report 14234661 (Version 1)
Quarter: 2017Q4

REPORT INFORMATION
  Report Type: Other
  Country: FR (occurrence: FR)
  Receive Date: 20171129
  Receipt Date: 20171129
  Transmission Date: 20180321
  Serious: Yes (Hospitalization, Other)
  Sender: FDA-Public Use
  Company Number: FR-APOTEX-2017AP021858

PATIENT
  Age: 87 Year
  Sex: Female

DRUGS (5)
  1. DEROXAT [Suspect]
     Active Substance: PAROXETINE HYDROCHLORIDE
     Indication: PRODUCT USED FOR UNKNOWN INDICATION
     Dosage: 20 MG, 1D
     Route: 048
     Dates: start: 201710
  2. COUMADINE [Suspect]
     Active Substance: WARFARIN SODIUM
     Indication: ATRIAL FIBRILLATION
     Dosage: UNK UNK, Z
     Route: 048
     Dates: start: 2008, end: 20171028
  3. DAFALGAN [Concomitant]
     Active Substance: ACETAMINOPHEN
     Indication: PRODUCT USED FOR UNKNOWN INDICATION
     Dosage: UNK
     Route: 048
  4. CARDENSIEL FILM-COATED TABLET [Concomitant]
     Indication: ATRIAL FIBRILLATION
     Dosage: 1.25 MG, 1D
     Route: 048
  5. LETROZOLE. [Concomitant]
     Active Substance: LETROZOLE
     Indication: PRODUCT USED FOR UNKNOWN INDICATION
     Dosage: 2.5 MG, 1D
     Route: 048
     Dates: start: 201710, end: 20171028

REACTIONS (2)
  - Rectal haemorrhage [Recovering/Resolving]
  - International normalised ratio increased [Recovered/Resolved]

NARRATIVE: CASE EVENT DATE: 201710
